FAERS Safety Report 4437547-8 (Version None)
Quarter: 2004Q3

REPORT INFORMATION
  Report Type: 
  Country: None (occurrence: None)
  Receive Date: 20040830
  Receipt Date: 20040830
  Transmission Date: 20050211
  Serious: Yes (Hospitalization)
  Sender: FDA-Public Use
  Company Number: None

PATIENT
  Sex: Male
  Weight: 54.4316 kg

DRUGS (2)
  1. MAGNEVIST [Suspect]
     Indication: CONVULSION
     Dosage: 15 ML X 1 IV
     Route: 042
     Dates: start: 20040827, end: 20040827
  2. MAGNEVIST [Suspect]
     Indication: SYNCOPE
     Dosage: 15 ML X 1 IV
     Route: 042
     Dates: start: 20040827, end: 20040827

REACTIONS (1)
  - CONJUNCTIVITIS [None]
